FAERS Safety Report 4633596-5 (Version None)
Quarter: 2005Q2

REPORT INFORMATION
  Report Type: 
  Country: None (occurrence: None)
  Receive Date: 20050412
  Receipt Date: 20050412
  Transmission Date: 20051028
  Serious: Yes (Life-Threatening, Hospitalization)
  Sender: FDA-Public Use
  Company Number: None

PATIENT
  Age: 57 Year
  Sex: Male
  Weight: 78 kg

DRUGS (4)
  1. LISINOPRIL [Suspect]
  2. FUROSEMIDE [Suspect]
  3. SPIRONOLACTONE 25MG TAB [Suspect]
  4. NADOLOL [Suspect]

REACTIONS (1)
  - RENAL FAILURE ACUTE [None]
